FAERS Safety Report 14970594 (Version 1)
Quarter: 2018Q2

REPORT INFORMATION
  Report Type: Spontaneous
  Country: EC (occurrence: EC)
  Receive Date: 20180604
  Receipt Date: 20180604
  Transmission Date: 20180711
  Serious: Yes (Hospitalization)
  Sender: FDA-Public Use
  Company Number: EC-ANIPHARMA-2018-EC-000001

PATIENT
  Age: 47 Year
  Sex: Male

DRUGS (2)
  1. IBUPROFEN (NON-SPECIFIC) [Suspect]
     Active Substance: IBUPROFEN
     Route: 048
  2. ASPIRIN. [Suspect]
     Active Substance: ASPIRIN

REACTIONS (1)
  - Kounis syndrome [Recovered/Resolved]
